FAERS Safety Report 6120514-6 (Version None)
Quarter: 2009Q1

REPORT INFORMATION
  Report Type: 
  Country: None (occurrence: None)
  Receive Date: 20090317
  Receipt Date: 20090309
  Transmission Date: 20090719
  Serious: Yes (Hospitalization, Other)
  Sender: FDA-Public Use
  Company Number: US-BAYER-200915034NA

PATIENT
  Age: 54 Year
  Sex: Female

DRUGS (16)
  1. CIPROFLOXACIN HCL [Suspect]
     Indication: SEPSIS
     Route: 042
     Dates: start: 20081224, end: 20081228
  2. BONIVA [Suspect]
     Dates: start: 20050701, end: 20081226
  3. SILVADENE [Suspect]
     Indication: LOCALISED INFECTION
     Dates: start: 20081101
  4. VANCOMYCIN [Suspect]
     Indication: SEPSIS
     Dates: start: 20081222, end: 20081228
  5. ZOSYN [Suspect]
     Indication: LOCALISED INFECTION
     Dates: start: 20081222, end: 20081228
  6. REBIF [Suspect]
     Indication: MULTIPLE SCLEROSIS
     Route: 058
     Dates: start: 20060206, end: 20081226
  7. PREDNISONE [Concomitant]
     Indication: SYSTEMIC LUPUS ERYTHEMATOSUS
  8. ALBUTEROL [Concomitant]
     Route: 055
  9. LABETALOL HCL [Concomitant]
     Indication: HYPERTENSION
     Dosage: TOTAL DAILY DOSE: 400 MG
     Route: 048
  10. ASMANEX TWISTHALER [Concomitant]
     Route: 055
  11. TYLENOL [Concomitant]
  12. ATIVAN [Concomitant]
     Route: 048
  13. ELAVIL [Concomitant]
     Route: 048
  14. FLONASE [Concomitant]
     Route: 045
  15. VALTREX [Concomitant]
  16. VICODIN [Concomitant]
     Route: 048

REACTIONS (9)
  - AUTOIMMUNE HEPATITIS [None]
  - BLOOD CREATININE INCREASED [None]
  - CLOSTRIDIUM DIFFICILE TOXIN TEST POSITIVE [None]
  - FOCAL SEGMENTAL GLOMERULOSCLEROSIS [None]
  - HYPERTENSION [None]
  - KIDNEY FIBROSIS [None]
  - PROTEINURIA [None]
  - RENAL FAILURE ACUTE [None]
  - TRANSAMINASES INCREASED [None]
